FAERS Safety Report 13829851 (Version 1)
Quarter: 2017Q3

REPORT INFORMATION
  Report Type: Spontaneous
  Country: US (occurrence: US)
  Receive Date: 20170803
  Receipt Date: 20170803
  Transmission Date: 20171127
  Serious: Yes (Life-Threatening, Hospitalization)
  Sender: FDA-Public Use
  Company Number: PHHY2017US113071

PATIENT
  Age: 15 Year
  Sex: Female

DRUGS (3)
  1. BISMUTH SUBSALICYLATE. [Interacting]
     Active Substance: BISMUTH SUBSALICYLATE
     Indication: SUICIDE ATTEMPT
     Route: 065
  2. ACETYLSALICYLIC ACID [Suspect]
     Active Substance: ASPIRIN
     Indication: SUICIDE ATTEMPT
     Dosage: 25 DF, UNK
     Route: 065
  3. IBUPROFEN. [Concomitant]
     Active Substance: IBUPROFEN
     Indication: SUICIDE ATTEMPT
     Dosage: 2000 MG, UNK
     Route: 065

REACTIONS (9)
  - Bezoar [Unknown]
  - Nausea [Recovering/Resolving]
  - Suicide attempt [Unknown]
  - Toxicity to various agents [Unknown]
  - Vomiting [Recovering/Resolving]
  - Tinnitus [Recovering/Resolving]
  - Abdominal pain [Recovering/Resolving]
  - Overdose [Unknown]
  - Drug interaction [Unknown]
